FAERS Safety Report 7016910-5 (Version None)
Quarter: 2010Q3

REPORT INFORMATION
  Report Type: 
  Country: None (occurrence: None)
  Receive Date: 20100927
  Receipt Date: 20100917
  Transmission Date: 20110219
  Serious: Yes (Other)
  Sender: FDA-Public Use
  Company Number: US-AMGEN-QUU438925

PATIENT
  Sex: Female

DRUGS (5)
  1. ARANESP [Suspect]
     Indication: ANAEMIA OF MALIGNANT DISEASE
     Dates: start: 20100428, end: 20100428
  2. PROCRIT [Suspect]
     Indication: ANAEMIA OF MALIGNANT DISEASE
     Dates: start: 20100519, end: 20100713
  3. TAXOL [Concomitant]
     Dates: start: 20100330
  4. CARBOPLATIN [Concomitant]
     Dates: start: 20100330
  5. RADIATION THERAPY [Concomitant]
     Dates: start: 20100428

REACTIONS (1)
  - TRANSFUSION [None]
